FAERS Safety Report 8550907-9 (Version None)
Quarter: 2012Q3

REPORT INFORMATION
  Report Type: 
  Country: None (occurrence: None)
  Receive Date: 20120730
  Receipt Date: 20120720
  Transmission Date: 20120928
  Serious: Yes (Hospitalization)
  Sender: FDA-Public Use
  Company Number: US-BAYER-2012-073416

PATIENT
  Age: 20 Year
  Sex: Female
  Weight: 81.633 kg

DRUGS (5)
  1. YAZ [Suspect]
  2. TYLENOL (CAPLET) [Concomitant]
  3. CLARITIN [Concomitant]
  4. YASMIN [Suspect]
  5. IBUPROFEN (ADVIL) [Concomitant]

REACTIONS (1)
  - PULMONARY EMBOLISM [None]
